FAERS Safety Report 23434247 (Version 2)
Quarter: 2024Q1

REPORT INFORMATION
  Report Type: Spontaneous
  Country: CA (occurrence: CA)
  Receive Date: 20240123
  Receipt Date: 20240219
  Transmission Date: 20240410
  Serious: Yes (Other)
  Sender: FDA-Public Use
  Company Number: CA-PFIZER INC-202201209996

PATIENT
  Age: 73 Year
  Sex: Male
  Weight: 101 kg

DRUGS (21)
  1. RUXIENCE [Suspect]
     Active Substance: RITUXIMAB-PVVR
     Indication: Granulomatosis with polyangiitis
     Dosage: 848 MG, DAY 1 AND DAY 8 TOTAL OF 1696 MG
     Route: 042
     Dates: start: 20221103, end: 20221103
  2. RUXIENCE [Suspect]
     Active Substance: RITUXIMAB-PVVR
     Dosage: 848 MG, DAY 1 AND DAY 8 TOTAL OF 1696MG
     Route: 042
     Dates: start: 20221103, end: 20221103
  3. RUXIENCE [Suspect]
     Active Substance: RITUXIMAB-PVVR
     Dosage: 848 MG DAY 1 AND DAY 8
     Route: 042
     Dates: start: 20221103, end: 20221111
  4. RUXIENCE [Suspect]
     Active Substance: RITUXIMAB-PVVR
     Dosage: 848 MG, DAY 1 AND DAY 8 TOTAL OF 1696MG
     Route: 042
     Dates: start: 20221111, end: 20221111
  5. RUXIENCE [Suspect]
     Active Substance: RITUXIMAB-PVVR
     Dosage: 848 MG, DAY 1 AND DAY 8 TOTAL OF 1696MG
     Route: 042
     Dates: start: 20221111, end: 20221111
  6. RUXIENCE [Suspect]
     Active Substance: RITUXIMAB-PVVR
     Dosage: 848 MG, DAY 1 AND DAY 8 TOTAL OF 1696MG
     Route: 042
     Dates: start: 20221118, end: 20221118
  7. RUXIENCE [Suspect]
     Active Substance: RITUXIMAB-PVVR
     Dosage: 848 MG, DAY 1 AND DAY 8 TOTAL OF 1696MG
     Route: 042
     Dates: start: 20221118, end: 20221118
  8. RUXIENCE [Suspect]
     Active Substance: RITUXIMAB-PVVR
     Dosage: 848 MG, WEEKLY, DAY 1 AND DAY 8, FOR TOTAL OF 4 DOSES WEEKLY
     Route: 042
     Dates: start: 20221118, end: 20221125
  9. RUXIENCE [Suspect]
     Active Substance: RITUXIMAB-PVVR
     Dosage: 500 MG, DAY 1 (Q6 MONTHS 2 DOSE)
     Route: 042
     Dates: start: 20230621
  10. ASPIRIN [Concomitant]
     Active Substance: ASPIRIN
     Dosage: UNK
  11. ATORVASTATIN [Concomitant]
     Active Substance: ATORVASTATIN
     Dosage: UNK
  12. AZATHIOPRINE [Concomitant]
     Active Substance: AZATHIOPRINE
     Dosage: UNK
  13. CALCITRIOL [Concomitant]
     Active Substance: CALCITRIOL
     Dosage: UNK
  14. CARVEDILOL [Concomitant]
     Active Substance: CARVEDILOL
     Dosage: UNK
  15. ENTRESTO [Concomitant]
     Active Substance: SACUBITRIL\VALSARTAN
     Dosage: UNK
  16. DAPAGLIFLOZIN [Concomitant]
     Active Substance: DAPAGLIFLOZIN
     Dosage: UNK
  17. PANTOPRAZOLE SODIUM [Concomitant]
     Active Substance: PANTOPRAZOLE SODIUM
     Dosage: UNK
  18. REPLAVITE [ASCORBIC ACID;BIOTIN;CALCIUM PANTOTHENATE;CYANOCOBALAMIN;FO [Concomitant]
     Dosage: UNK
  19. RISEDRONATE SODIUM [Concomitant]
     Active Substance: RISEDRONATE SODIUM
     Dosage: UNK
  20. TUMS [Concomitant]
     Active Substance: CALCIUM CARBONATE
     Dosage: UNK
  21. CHOLECALCIFEROL [Concomitant]
     Active Substance: CHOLECALCIFEROL
     Dosage: UNK

REACTIONS (6)
  - Hip surgery [Unknown]
  - Weight increased [Unknown]
  - Infection [Not Recovered/Not Resolved]
  - Off label use [Unknown]
  - Off label use [Unknown]
  - Intentional product use issue [Unknown]

NARRATIVE: CASE EVENT DATE: 20221103
